FAERS Safety Report 12179985 (Version 5)
Quarter: 2017Q2

REPORT INFORMATION
  Report Type: Report from Study
  Country: IE (occurrence: IE)
  Receive Date: 20160314
  Receipt Date: 20170616
  Transmission Date: 20170830
  Serious: Yes (Hospitalization)
  Sender: FDA-Public Use
  Company Number: IE-BIOGEN-2016BI00197024

PATIENT
  Age: 5 Year
  Sex: Male
  Weight: 20 kg

DRUGS (7)
  1. RFIXFC [Suspect]
     Active Substance: EFTRENONACOG ALFA
     Route: 042
  2. RFIXFC [Suspect]
     Active Substance: EFTRENONACOG ALFA
     Route: 042
  3. RFIXFC [Suspect]
     Active Substance: EFTRENONACOG ALFA
     Route: 042
  4. CALVEPEN [Concomitant]
     Indication: LACERATION
     Route: 065
     Dates: start: 20160226
  5. RFIXFC [Suspect]
     Active Substance: EFTRENONACOG ALFA
     Indication: HAEMOPHILIA
     Route: 042
     Dates: start: 20141111
  6. RFIXFC [Suspect]
     Active Substance: EFTRENONACOG ALFA
     Route: 042
     Dates: start: 20160227, end: 20160227
  7. RFIXFC [Suspect]
     Active Substance: EFTRENONACOG ALFA
     Route: 042

REACTIONS (1)
  - Wound infection [Recovered/Resolved]

NARRATIVE: CASE EVENT DATE: 20160302
